FAERS Safety Report 6674608-7 (Version None)
Quarter: 2010Q2

REPORT INFORMATION
  Report Type: 
  Country: None (occurrence: None)
  Receive Date: 20100409
  Receipt Date: 20100329
  Transmission Date: 20101027
  Serious: Yes (Other)
  Sender: FDA-Public Use
  Company Number: US-ROCHE-693198

PATIENT
  Sex: Female
  Weight: 106.6 kg

DRUGS (8)
  1. AVASTIN [Suspect]
     Indication: DIABETIC RETINOPATHY
     Dosage: ROUTE: INTRAVENTRICULAR, 1 INJECTION IN RIGHT EYE
     Route: 050
     Dates: start: 20091101
  2. AVASTIN [Suspect]
     Dosage: FIRST INJECTION IN LEFT EYE ON 11 DECEMBER 2009 AND ON UNKNOWN DATE SECOND INJECTION IN LEFT EYE
     Route: 050
     Dates: start: 20091211
  3. NORVASC [Concomitant]
  4. LISINOPRIL [Concomitant]
  5. INSULIN [Concomitant]
  6. GLUCOVANCE [Concomitant]
  7. LANTUS [Concomitant]
  8. VITAMIN TAB [Concomitant]
     Dosage: DRUG:V-CAPS (VITAMINS)

REACTIONS (2)
  - DRUG INEFFECTIVE [None]
  - VISUAL ACUITY REDUCED [None]
